FAERS Safety Report 23885427 (Version 2)
Quarter: 2024Q2

REPORT INFORMATION
  Report Type: Report from Study
  Country: CZ (occurrence: CZ)
  Receive Date: 20240522
  Receipt Date: 20240604
  Transmission Date: 20240715
  Serious: Yes (Hospitalization)
  Sender: FDA-Public Use
  Company Number: CZ-BAXTER-2024BAX018579

PATIENT
  Age: 72 Year
  Sex: Female
  Weight: 47 kg

DRUGS (25)
  1. CYCLOPHOSPHAMIDE [Suspect]
     Active Substance: CYCLOPHOSPHAMIDE
     Indication: Diffuse large B-cell lymphoma
     Dosage: 1057.5 MG, EVERY 3 WEEKS, ONGOING
     Route: 042
     Dates: start: 20240116
  2. MESNA [Suspect]
     Active Substance: MESNA
     Indication: Cystitis haemorrhagic
     Dosage: 800 MG, AS NECESSARY
     Route: 065
     Dates: start: 20240206
  3. MESNA [Suspect]
     Active Substance: MESNA
     Indication: Prophylaxis
  4. EPCORITAMAB [Suspect]
     Active Substance: EPCORITAMAB
     Indication: Diffuse large B-cell lymphoma
     Dosage: UNK, DRUG NOT ADMINISTERED
     Route: 065
  5. VINCRISTINE [Suspect]
     Active Substance: VINCRISTINE
     Indication: Diffuse large B-cell lymphoma
     Dosage: 1.97 MG, EVERY 3 WEEKS, ONGOING
     Route: 042
     Dates: start: 20240116
  6. PREDNISONE [Suspect]
     Active Substance: PREDNISONE
     Indication: Diffuse large B-cell lymphoma
     Dosage: 100 MG C1-6, D1-5, EVERY 1 DAYS, ONGOING
     Route: 048
     Dates: start: 20240117
  7. RITUXIMAB [Suspect]
     Active Substance: RITUXIMAB
     Indication: Diffuse large B-cell lymphoma
     Dosage: 528 MG, EVERY 3 WEEKS, ONGOING
     Route: 042
     Dates: start: 20240116
  8. DOXORUBICIN [Suspect]
     Active Substance: DOXORUBICIN
     Indication: Diffuse large B-cell lymphoma
     Dosage: 70.5 MG, EVERY 3 WEEKS, ONGOING
     Route: 042
     Dates: start: 20240116
  9. ASPIRIN [Concomitant]
     Active Substance: ASPIRIN
     Indication: Prophylaxis
     Dosage: 100 MG, EVERY 1 DAYS, START DATE: 2023
     Route: 065
  10. Enelbin [Concomitant]
     Indication: Product used for unknown indication
     Dosage: 100 MG, 2/DAYS, START DATE: 2023
     Route: 065
  11. PANTOPRAZOLE SODIUM [Concomitant]
     Active Substance: PANTOPRAZOLE SODIUM
     Indication: Product used for unknown indication
     Dosage: 40 MG, EVERY 1 DAYS, START DATE: 2023
     Route: 065
  12. AMLODIPINE BESYLATE [Concomitant]
     Active Substance: AMLODIPINE BESYLATE
     Indication: Hypertension
     Dosage: 5 MG, EVERY 1 DAYS, START DATE: 2022
     Route: 065
  13. ROSUVASTATIN CALCIUM [Concomitant]
     Active Substance: ROSUVASTATIN CALCIUM
     Indication: Product used for unknown indication
     Dosage: 20 MG, EVERY 1 DAYS, START DATE: 2023
     Route: 065
  14. VALACYCLOVIR HYDROCHLORIDE [Concomitant]
     Active Substance: VALACYCLOVIR HYDROCHLORIDE
     Indication: Infection prophylaxis
     Dosage: 500 MG, 2/DAYS
     Route: 065
     Dates: start: 20240118
  15. BISEPTOL [Concomitant]
     Active Substance: SULFAMETHOXAZOLE\TRIMETHOPRIM
     Indication: Infection prophylaxis
     Dosage: 480 MG, EVERY 1 DAYS
     Route: 065
     Dates: start: 20240118
  16. BISULEPIN [Concomitant]
     Active Substance: BISULEPIN
     Indication: Premedication
     Dosage: 1 DOSAGE FORM DOSAGE FORM: AMP, AS NECESSARY
     Route: 065
     Dates: start: 20240116
  17. BISULEPIN [Concomitant]
     Active Substance: BISULEPIN
     Indication: Prophylaxis
  18. ACETAMINOPHEN [Concomitant]
     Active Substance: ACETAMINOPHEN
     Indication: Premedication
     Dosage: 1000 MG, AS NECESSARY
     Route: 065
     Dates: start: 20240206
  19. GRANISETRON [Concomitant]
     Active Substance: GRANISETRON
     Indication: Prophylaxis of nausea and vomiting
     Dosage: 3 MG, AS NECESSARY
     Route: 065
     Dates: start: 20240116
  20. GRANISETRON [Concomitant]
     Active Substance: GRANISETRON
     Indication: Prophylaxis of nausea and vomiting
  21. DEXAMETHASONE [Concomitant]
     Active Substance: DEXAMETHASONE
     Indication: Prophylaxis
     Dosage: 12 MG, AS NECESSARY
     Route: 065
     Dates: start: 20240116
  22. POTASSIUM CHLORIDE [Concomitant]
     Active Substance: POTASSIUM CHLORIDE
     Indication: Prophylaxis
     Dosage: 1 G, AS NECESSARY
     Route: 065
     Dates: start: 20240111
  23. POTASSIUM CHLORIDE [Concomitant]
     Active Substance: POTASSIUM CHLORIDE
     Indication: Hypokalaemia
  24. ZIEXTENZO [Concomitant]
     Active Substance: PEGFILGRASTIM-BMEZ
     Indication: Prophylaxis
     Dosage: 6 MG, AS NECESSARY
     Route: 065
     Dates: start: 20240208
  25. ZIEXTENZO [Concomitant]
     Active Substance: PEGFILGRASTIM-BMEZ
     Indication: Neutropenia

REACTIONS (1)
  - Dyspepsia [Recovered/Resolved]

NARRATIVE: CASE EVENT DATE: 20240420
